FAERS Safety Report 12433830 (Version 2)
Quarter: 2016Q2

REPORT INFORMATION
  Report Type: Spontaneous
  Country: NL (occurrence: NL)
  Receive Date: 20160603
  Receipt Date: 20160610
  Transmission Date: 20160815
  Serious: No
  Sender: FDA-Public Use
  Company Number: NL-TEVA-663768ACC

PATIENT
  Age: 61 Year
  Sex: Male

DRUGS (7)
  1. HYDROCHLOROTHIAZIDE TABLET 12,5MG [Suspect]
     Active Substance: HYDROCHLOROTHIAZIDE
     Indication: CARDIOVASCULAR EVENT PROPHYLAXIS
     Dosage: 12.5 MILLIGRAM DAILY; ONCE DAILY ONE PIECE
     Route: 048
     Dates: start: 20160120
  2. CARBASALAATCALCIUM POEDER 100MG [Concomitant]
     Dosage: 100 MILLIGRAM DAILY; ONCE DAILY ONE PIECE
     Route: 048
     Dates: start: 200605
  3. NIFEDIPINE TABLET MGA 30MG [Suspect]
     Active Substance: NIFEDIPINE
     Indication: CARDIOVASCULAR EVENT PROPHYLAXIS
     Dosage: 30 MILLIGRAM DAILY; ONCE DAILY ONE PIECE
     Route: 048
     Dates: start: 20160120
  4. LISINOPRIL TABLET 10MG [Suspect]
     Active Substance: LISINOPRIL
     Indication: CARDIOVASCULAR EVENT PROPHYLAXIS
     Dosage: 10 MILLIGRAM DAILY; ONCE DAILY ONE PIECE
     Route: 048
     Dates: start: 20160120
  5. SOTALOL TABLET  40MG [Concomitant]
     Active Substance: SOTALOL
     Dosage: 160 MILLIGRAM DAILY; TWICE DAILY TWO PIECES
     Route: 048
     Dates: start: 2001
  6. DOXAZOSINE TABLET MGA 8MG [Suspect]
     Active Substance: DOXAZOSIN MESYLATE
     Indication: CARDIOVASCULAR EVENT PROPHYLAXIS
     Dosage: 8 MILLIGRAM DAILY; ONCE DAILY ONE PIECE
     Route: 048
     Dates: start: 20160120
  7. PANTOPRAZOLE SODIUM. [Concomitant]
     Active Substance: PANTOPRAZOLE SODIUM
     Dosage: 20 MILLIGRAM DAILY; ONCE DAILY ONE PIECE
     Route: 048
     Dates: start: 20160120

REACTIONS (1)
  - Blood pressure fluctuation [Not Recovered/Not Resolved]

NARRATIVE: CASE EVENT DATE: 201601
